FAERS Safety Report 24200628 (Version 1)
Quarter: 2024Q3

REPORT INFORMATION
  Report Type: Spontaneous
  Country: US (occurrence: US)
  Receive Date: 20240812
  Receipt Date: 20240812
  Transmission Date: 20241016
  Serious: No
  Sender: ANI
  Company Number: US-ANIPHARMA-2024-US-033298

PATIENT
  Sex: Female

DRUGS (17)
  1. CORTICOTROPIN [Suspect]
     Active Substance: CORTICOTROPIN
     Indication: Systemic lupus erythematosus
     Dosage: 80 UNITS 2 TIMES A WEEK
     Route: 058
  2. CELEBREX [Concomitant]
     Active Substance: CELECOXIB
  3. GLUCOSAMINE 1500 COMPLEX [Concomitant]
  4. SUPER B-50 [Concomitant]
  5. VITAMIN B COMPLEX [Concomitant]
     Active Substance: CYANOCOBALAMIN\DEXPANTHENOL\NIACINAMIDE\PYRIDOXINE HYDROCHLORIDE\RIBOFLAVIN 5^-PHOSPHATE SODIUM\THIA
  6. ZOFRAN [Concomitant]
     Active Substance: ONDANSETRON HYDROCHLORIDE
  7. BUPRENORPHINE HYDROCHLORIDE [Concomitant]
     Active Substance: BUPRENORPHINE HYDROCHLORIDE
  8. NURTEC ODT [Concomitant]
     Active Substance: RIMEGEPANT SULFATE
  9. MEDROL [Concomitant]
     Active Substance: METHYLPREDNISOLONE
  10. CYMBALTA [Concomitant]
     Active Substance: DULOXETINE HYDROCHLORIDE
  11. BACLOFEN [Concomitant]
     Active Substance: BACLOFEN
  12. BIOTIN [Concomitant]
     Active Substance: BIOTIN
  13. BUSPIRONE HYDROCHLORIDE [Concomitant]
     Active Substance: BUSPIRONE HYDROCHLORIDE
  14. BENLYSTA [Concomitant]
     Active Substance: BELIMUMAB
  15. TYLENOL MAX-STR FLU NIGHT [Concomitant]
  16. LEVOTHYROXINE SODIUM [Concomitant]
     Active Substance: LEVOTHYROXINE SODIUM
  17. BENADRYL [Concomitant]
     Active Substance: DIPHENHYDRAMINE HYDROCHLORIDE

REACTIONS (5)
  - Anxiety [Unknown]
  - Psychomotor hyperactivity [Unknown]
  - Injection site bruising [Not Recovered/Not Resolved]
  - Injection site swelling [Unknown]
  - Product dose omission issue [Unknown]
